FAERS Safety Report 4834835-8 (Version None)
Quarter: 2005Q4

REPORT INFORMATION
  Report Type: 
  Country: None (occurrence: None)
  Receive Date: 20051114
  Receipt Date: 20051104
  Transmission Date: 20060501
  Serious: Yes (Hospitalization, Other)
  Sender: FDA-Public Use
  Company Number: 2005129580

PATIENT
  Sex: Female
  Weight: 90.7194 kg

DRUGS (13)
  1. CELEBREX [Suspect]
     Indication: ARTHRALGIA
     Dosage: 400 MG (200 MG, 2 IN 1 D), ORAL
     Route: 048
  2. CELEBREX [Suspect]
     Indication: ARTHRITIS
     Dosage: 400 MG (200 MG, 2 IN 1 D), ORAL
     Route: 048
  3. BEXTRA [Suspect]
     Indication: ARTHRALGIA
     Dosage: 10 MG (10 MG, 1 IN 1 D), ORAL
     Route: 048
  4. BEXTRA [Suspect]
     Indication: ARTHRITIS
     Dosage: 10 MG (10 MG, 1 IN 1 D), ORAL
     Route: 048
  5. TEGRETOL [Concomitant]
  6. CAPTOPRIL [Concomitant]
  7. PLAQUENIL (HYDROXYCLOROQUINE PHOSPHATE) [Concomitant]
  8. WARFARIN SODIUM [Concomitant]
  9. PREVACID [Concomitant]
  10. FOSAMAX [Concomitant]
  11. GLUCOSAMINE W/CHONDROITIN SULFATES (ASCORBIC ACID, CHONDROITIN SULFATE [Concomitant]
  12. CALCIUM WITH VITAMIN D (CALCIUM PHOSPHATE, CALCIUM SODIUM LACTATE, ERG [Concomitant]
  13. VITAMIN C (VITAMIN C) [Concomitant]

REACTIONS (13)
  - ARTHRALGIA [None]
  - COLONIC OBSTRUCTION [None]
  - COLONIC STENOSIS [None]
  - CONSTIPATION [None]
  - DIVERTICULITIS [None]
  - GASTRIC DISORDER [None]
  - INCISION SITE COMPLICATION [None]
  - INFECTION [None]
  - INTRAOCULAR PRESSURE INCREASED [None]
  - LOWER RESPIRATORY TRACT INFECTION [None]
  - MALAISE [None]
  - SECRETION DISCHARGE [None]
  - STAPHYLOCOCCAL INFECTION [None]
